FAERS Safety Report 16448865 (Version 1)
Quarter: 2019Q2

REPORT INFORMATION
  Report Type: Spontaneous
  Country: DE (occurrence: DE)
  Receive Date: 20190619
  Receipt Date: 20190619
  Transmission Date: 20190711
  Serious: Yes (Hospitalization)
  Sender: FDA-Public Use
  Company Number: DE-TEVA-2019-DE-1064016

PATIENT
  Age: 18 Year
  Sex: Female

DRUGS (1)
  1. ESCITALOPRAM ABZ 10 MG FILMTABLETTEN [Suspect]
     Active Substance: ESCITALOPRAM OXALATE
     Indication: PSYCHOGENIC SEIZURE
     Dosage: 10 MILLIGRAM DAILY;
     Route: 048
     Dates: start: 201810, end: 2019

REACTIONS (7)
  - Visual impairment [Unknown]
  - Intentional self-injury [Unknown]
  - Confusional state [Unknown]
  - Sleep disorder [Unknown]
  - Withdrawal syndrome [Unknown]
  - Psychotic disorder [Unknown]
  - Insomnia [Unknown]
